FAERS Safety Report 9240006 (Version 2)
Quarter: 2013Q2

REPORT INFORMATION
  Report Type: Spontaneous
  Country: JP (occurrence: JP)
  Receive Date: 20130418
  Receipt Date: 20130625
  Transmission Date: 20140414
  Serious: Yes (Hospitalization)
  Sender: FDA-Public Use
  Company Number: JP-GLAXOSMITHKLINE-B0883305A

PATIENT
  Age: 31 Year
  Sex: Male

DRUGS (4)
  1. LAMICTAL [Suspect]
     Indication: EPILEPSY
     Dosage: 25MG PER DAY
     Route: 048
     Dates: start: 20130215, end: 20130314
  2. LAMICTAL [Suspect]
     Indication: EPILEPSY
     Dosage: 50MG PER DAY
     Route: 048
     Dates: start: 20130315, end: 20130331
  3. LAMICTAL [Suspect]
     Indication: EPILEPSY
     Dosage: 25MG PER DAY
     Route: 048
     Dates: start: 20130401, end: 20130405
  4. DEPAKENE-R [Concomitant]
     Indication: EPILEPSY
     Dosage: 500MG TWICE PER DAY
     Route: 048

REACTIONS (7)
  - Erythema [Recovering/Resolving]
  - Generalised erythema [Recovering/Resolving]
  - Lymphadenopathy [Recovering/Resolving]
  - Eosinophilia [Recovering/Resolving]
  - Erythema [Unknown]
  - Pyrexia [Unknown]
  - Liver disorder [Unknown]
